FAERS Safety Report 25424986 (Version 1)
Quarter: 2025Q2

REPORT INFORMATION
  Report Type: Spontaneous
  Country: US (occurrence: None)
  Receive Date: 20250611
  Receipt Date: 20250611
  Transmission Date: 20250716
  Serious: Yes (Disabling)
  Sender: FDA-CTU
  Company Number: None

PATIENT
  Age: 32 Year
  Sex: Female
  Weight: 117 kg

DRUGS (5)
  1. AJOVY [Suspect]
     Active Substance: FREMANEZUMAB-VFRM
     Indication: Migraine prophylaxis
     Route: 058
     Dates: start: 20250523, end: 20250523
  2. SUMATRIPTAN [Concomitant]
     Active Substance: SUMATRIPTAN
  3. LEXAPRO [Concomitant]
     Active Substance: ESCITALOPRAM OXALATE
  4. METOPROLOL [Concomitant]
     Active Substance: METOPROLOL
  5. EFFEXOR [Concomitant]
     Active Substance: VENLAFAXINE HYDROCHLORIDE

REACTIONS (9)
  - Rash [None]
  - Rash erythematous [None]
  - Rash pruritic [None]
  - Dry skin [None]
  - Skin irritation [None]
  - Skin exfoliation [None]
  - Adverse drug reaction [None]
  - Scar [None]
  - Wound [None]

NARRATIVE: CASE EVENT DATE: 20250523
